FAERS Safety Report 24824491 (Version 1)
Quarter: 2025Q1

REPORT INFORMATION
  Report Type: Spontaneous
  Country: CN (occurrence: CN)
  Receive Date: 20250109
  Receipt Date: 20250109
  Transmission Date: 20250409
  Serious: Yes (Hospitalization, Other)
  Sender: ACCORD
  Company Number: None

PATIENT
  Age: 57 Year
  Sex: Female
  Weight: 64 kg

DRUGS (4)
  1. TRASTUZUMAB [Suspect]
     Active Substance: TRASTUZUMAB
     Indication: Breast cancer in situ
     Dosage: 390 MILLIGRAM, QD, 150 MILLIGRAM
     Route: 042
     Dates: start: 20241127, end: 20241127
  2. PERTUZUMAB [Suspect]
     Active Substance: PERTUZUMAB
     Indication: Breast cancer in situ
     Dosage: 420 MILLIGRAM, QD
     Route: 042
     Dates: start: 20241127, end: 20241127
  3. CARBOPLATIN [Suspect]
     Active Substance: CARBOPLATIN
     Indication: Breast cancer in situ
     Dosage: 530 MILLIGRAM, QD, IV DRIP
     Route: 042
     Dates: start: 20241127, end: 20241127
  4. PACLITAXEL [Suspect]
     Active Substance: PACLITAXEL
     Indication: Breast cancer in situ
     Dosage: 425 MILLIGRAM, QD,  IV DRIP
     Route: 042
     Dates: start: 20241127, end: 20241127

REACTIONS (1)
  - Transaminases increased [Recovering/Resolving]

NARRATIVE: CASE EVENT DATE: 20241214
